FAERS Safety Report 7505325-9 (Version None)
Quarter: 2011Q2

REPORT INFORMATION
  Report Type: 
  Country: None (occurrence: None)
  Receive Date: 20110420
  Receipt Date: 20110224
  Transmission Date: 20111010
  Serious: Yes (Disabling)
  Sender: FDA-Public Use
  Company Number: SPV1-2010-01325

PATIENT
  Age: 48 Year
  Sex: Male
  Weight: 94.3 kg

DRUGS (2)
  1. LIALDA [Suspect]
     Indication: COLITIS ULCERATIVE
     Dosage: 1.2 G, 2X/DAY, BID, ORAL
     Route: 048
     Dates: start: 20090101, end: 20090301
  2. PREDNISONE [Concomitant]

REACTIONS (1)
  - ALVEOLITIS ALLERGIC [None]
